FAERS Safety Report 20906619 (Version 1)
Quarter: 2022Q2

REPORT INFORMATION
  Report Type: Spontaneous
  Country: US (occurrence: None)
  Receive Date: 20220602
  Receipt Date: 20220602
  Transmission Date: 20220721
  Serious: No
  Sender: FDA-Public Use
  Company Number: None

PATIENT
  Age: 75 Year
  Sex: Male

DRUGS (1)
  1. METFORMIN HYDROCHLORIDE [Suspect]
     Active Substance: METFORMIN HYDROCHLORIDE
     Indication: Diabetes mellitus
     Dates: start: 20200604, end: 20210228

REACTIONS (4)
  - Lactic acidosis [None]
  - Atrial fibrillation [None]
  - Sinus bradycardia [None]
  - Pulmonary mass [None]

NARRATIVE: CASE EVENT DATE: 20220216
